FAERS Safety Report 25827156 (Version 1)
Quarter: 2025Q3

REPORT INFORMATION
  Report Type: Spontaneous
  Country: US (occurrence: US)
  Receive Date: 20250920
  Receipt Date: 20250920
  Transmission Date: 20251021
  Serious: Yes (Other)
  Sender: ALEXION PHARMACEUTICALS
  Company Number: US-AstraZeneca-CH-00953366AP

PATIENT
  Sex: Female

DRUGS (1)
  1. SYMBICORT [Suspect]
     Active Substance: BUDESONIDE\FORMOTEROL FUMARATE DIHYDRATE
     Route: 065

REACTIONS (7)
  - Asthma [Unknown]
  - Dysphonia [Unknown]
  - Choking [Unknown]
  - Wheezing [Unknown]
  - Dry throat [Unknown]
  - Product use issue [Unknown]
  - Device malfunction [Unknown]
